FAERS Safety Report 10381217 (Version 1)
Quarter: 2014Q3

REPORT INFORMATION
  Report Type: Spontaneous
  Country: US (occurrence: None)
  Receive Date: 20140812
  Receipt Date: 20140812
  Transmission Date: 20150326
  Serious: Yes (Hospitalization)
  Sender: FDA-Public Use
  Company Number: None

PATIENT
  Age: 44 Year
  Sex: Male
  Weight: 94 kg

DRUGS (2)
  1. CLONAZEPAM. [Suspect]
     Active Substance: CLONAZEPAM
     Indication: ANXIETY
     Route: 048
     Dates: start: 20131030
  2. CLONAZEPAM. [Suspect]
     Active Substance: CLONAZEPAM
     Indication: DEPRESSION
     Route: 048
     Dates: start: 20131030

REACTIONS (8)
  - Panic attack [None]
  - Loss of employment [None]
  - Sedation [None]
  - Anxiety [None]
  - Intentional overdose [None]
  - Convulsion [None]
  - Depression [None]
  - Somnolence [None]

NARRATIVE: CASE EVENT DATE: 20140722
